FAERS Safety Report 5417712-3 (Version None)
Quarter: 2007Q3

REPORT INFORMATION
  Report Type: 
  Country: None (occurrence: None)
  Receive Date: 20070815
  Receipt Date: 20070815
  Transmission Date: 20080115
  Serious: Yes (Hospitalization)
  Sender: FDA-Public Use
  Company Number: None

PATIENT
  Sex: Male
  Weight: 113.8529 kg

DRUGS (4)
  1. DIOVAN HCT [Suspect]
     Indication: HYPERTENSION
     Dosage: 80/12.5MG PO QD PRIOR TO ADMISSION
     Route: 048
  2. LIPITOR [Concomitant]
  3. PROZAC [Concomitant]
  4. ASPIRIN [Concomitant]

REACTIONS (3)
  - DIZZINESS [None]
  - HOT FLUSH [None]
  - PRESYNCOPE [None]
